FAERS Safety Report 13386592 (Version 1)
Quarter: 2017Q1

REPORT INFORMATION
  Report Type: Spontaneous
  Country: US (occurrence: US)
  Receive Date: 20170330
  Receipt Date: 20170330
  Transmission Date: 20170429
  Serious: No
  Sender: FDA-Public Use
  Company Number: US-PFIZER INC-2017133063

PATIENT
  Age: 71 Year
  Sex: Female

DRUGS (1)
  1. LEVOXYL [Suspect]
     Active Substance: LEVOTHYROXINE SODIUM
     Indication: THYROID DISORDER
     Dosage: 112 UG, UNK  (EMPTY STOMACH AND WHEN SHE WAKES UP)

REACTIONS (2)
  - Drug ineffective [Unknown]
  - Blood thyroid stimulating hormone decreased [Unknown]
